FAERS Safety Report 21071850 (Version 2)
Quarter: 2023Q1

REPORT INFORMATION
  Report Type: Spontaneous
  Country: US (occurrence: US)
  Receive Date: 20220712
  Receipt Date: 20230117
  Transmission Date: 20230418
  Serious: No
  Sender: FDA-Public Use
  Company Number: US-NOVOPROD-911368

PATIENT
  Sex: Female

DRUGS (4)
  1. RYBELSUS [Suspect]
     Active Substance: SEMAGLUTIDE
     Indication: Product used for unknown indication
     Dosage: 7 MG
     Route: 048
     Dates: start: 202111, end: 202111
  2. RYBELSUS [Suspect]
     Active Substance: SEMAGLUTIDE
     Dosage: UNK
  3. RYBELSUS [Suspect]
     Active Substance: SEMAGLUTIDE
     Dosage: 7 MG
     Route: 048
     Dates: start: 202111, end: 202111
  4. RYBELSUS [Suspect]
     Active Substance: SEMAGLUTIDE
     Dosage: 7 MG
     Route: 048
     Dates: start: 202111, end: 202111

REACTIONS (2)
  - Fungal infection [Recovered/Resolved]
  - Nausea [Recovered/Resolved]

NARRATIVE: CASE EVENT DATE: 20211101
